FAERS Safety Report 9838374 (Version 4)
Quarter: 2014Q1

REPORT INFORMATION
  Report Type: Spontaneous
  Country: JP (occurrence: JP)
  Receive Date: 20140123
  Receipt Date: 20140319
  Transmission Date: 20141002
  Serious: Yes (Hospitalization)
  Sender: FDA-Public Use
  Company Number: JP-GLAXOSMITHKLINE-B0962875A

PATIENT
  Age: 36 Year
  Sex: Male

DRUGS (1)
  1. SULTANOL 100 MCG [Suspect]
     Indication: ASTHMA
     Route: 055

REACTIONS (13)
  - Epilepsy [Recovered/Resolved]
  - Convulsion [Recovered/Resolved]
  - Convulsion [Recovered/Resolved]
  - Loss of consciousness [Recovered/Resolved]
  - Disorientation [Unknown]
  - Somnolence [Unknown]
  - Palpitations [Unknown]
  - Sweat gland disorder [Unknown]
  - Tremor [Unknown]
  - Electroencephalogram abnormal [Unknown]
  - Overdose [Unknown]
  - Drug abuse [Unknown]
  - Treatment noncompliance [Unknown]
